FAERS Safety Report 18622821 (Version 2)
Quarter: 2021Q1

REPORT INFORMATION
  Report Type: Report from Study
  Country: FR (occurrence: FR)
  Receive Date: 20201216
  Receipt Date: 20210201
  Transmission Date: 20210419
  Serious: Yes (Congenital Anomaly)
  Sender: FDA-Public Use
  Company Number: FR-GILEAD-2020-0507716

PATIENT
  Sex: Male
  Weight: 2.97 kg

DRUGS (3)
  1. EMTRICITABINE;TENOFOVIR DISOPROXIL FUMARATE [Suspect]
     Active Substance: EMTRICITABINE\TENOFOVIR DISOPROXIL FUMARATE
     Indication: HIV INFECTION
     Dosage: UNK
     Route: 064
     Dates: start: 20180815, end: 20190401
  2. NORVIR [Suspect]
     Active Substance: RITONAVIR
     Indication: PRODUCT USED FOR UNKNOWN INDICATION
     Dosage: UNK
     Route: 064
     Dates: start: 20180815, end: 20190401
  3. PREZISTA [Suspect]
     Active Substance: DARUNAVIR ETHANOLATE
     Indication: PRODUCT USED FOR UNKNOWN INDICATION
     Dosage: UNK
     Route: 064
     Dates: start: 20180815, end: 20190401

REACTIONS (2)
  - Foetal exposure during pregnancy [Recovered/Resolved]
  - Polydactyly [Unknown]
